FAERS Safety Report 15289517 (Version 2)
Quarter: 2018Q3

REPORT INFORMATION
  Report Type: Spontaneous
  Country: US (occurrence: US)
  Receive Date: 20180817
  Receipt Date: 20180911
  Transmission Date: 20181010
  Serious: Yes (Other)
  Sender: FDA-Public Use
  Company Number: US-IMPAX LABORATORIES, INC-2018-IPXL-02428

PATIENT
  Age: 73 Year
  Sex: Female
  Weight: 57 kg

DRUGS (14)
  1. AMLODIPINE [Concomitant]
     Active Substance: AMLODIPINE BESYLATE
     Indication: PRODUCT USED FOR UNKNOWN INDICATION
     Dosage: 2.5 MG, UNK
     Route: 065
  2. GOCOVRI [Suspect]
     Active Substance: AMANTADINE
     Dosage: 137 MG, 2 CAPSULE (274 MG) AT BEDTIME
     Route: 048
     Dates: start: 20180524
  3. AMANTADINE. [Concomitant]
     Active Substance: AMANTADINE HYDROCHLORIDE
     Indication: PRODUCT USED FOR UNKNOWN INDICATION
     Dosage: 100 MG, UNK
  4. CLONAZEPAM. [Concomitant]
     Active Substance: CLONAZEPAM
     Indication: PRODUCT USED FOR UNKNOWN INDICATION
     Dosage: 0.5 MG, UNK
     Route: 065
  5. CITALOPRAM [Concomitant]
     Active Substance: CITALOPRAM HYDROBROMIDE
     Indication: PRODUCT USED FOR UNKNOWN INDICATION
     Dosage: 10 MG, UNK
     Route: 065
  6. RYTARY [Suspect]
     Active Substance: CARBIDOPA\LEVODOPA
     Indication: PARKINSON^S DISEASE
     Dosage: 23.75/95 MG, UNK
     Route: 065
  7. GOCOVRI [Suspect]
     Active Substance: AMANTADINE
     Indication: DYSKINESIA
     Dosage: 137 MG, 1 CAPSULE AT BEDTIME
     Route: 048
     Dates: start: 20180517, end: 20180523
  8. ATORVASTATIN [Concomitant]
     Active Substance: ATORVASTATIN
     Indication: PRODUCT USED FOR UNKNOWN INDICATION
     Dosage: 20 MG, UNK
     Route: 065
  9. COZAAR [Concomitant]
     Active Substance: LOSARTAN POTASSIUM
     Indication: PRODUCT USED FOR UNKNOWN INDICATION
     Dosage: 50 MG, UNK
     Route: 065
  10. ASA [Concomitant]
     Active Substance: ASPIRIN
     Indication: PRODUCT USED FOR UNKNOWN INDICATION
     Dosage: UNK
     Route: 065
  11. LOSARTAN. [Concomitant]
     Active Substance: LOSARTAN
     Indication: PRODUCT USED FOR UNKNOWN INDICATION
     Dosage: UNK
     Route: 065
  12. RYTARY [Suspect]
     Active Substance: CARBIDOPA\LEVODOPA
     Dosage: 23.75/95 MG, INCREASED DOSE
     Route: 065
  13. GOCOVRI [Suspect]
     Active Substance: AMANTADINE
     Dosage: 137 MG, 1 CAPSULE AT BEDTIME
     Route: 048
     Dates: start: 2018, end: 2018
  14. ASPIRIN EC [Concomitant]
     Active Substance: ASPIRIN
     Indication: PRODUCT USED FOR UNKNOWN INDICATION
     Dosage: 81 MG, UNK
     Route: 065

REACTIONS (9)
  - Depression [Recovering/Resolving]
  - Fall [Recovered/Resolved]
  - Syncope [Recovered/Resolved]
  - Dyskinesia [Recovering/Resolving]
  - Orthostatic hypotension [Recovered/Resolved]
  - Contusion [Recovered/Resolved]
  - Pain [Recovered/Resolved]
  - Hypokinesia [Recovered/Resolved]
  - Mood altered [Recovered/Resolved]

NARRATIVE: CASE EVENT DATE: 2018
